FAERS Safety Report 5375704-7 (Version None)
Quarter: 2007Q2

REPORT INFORMATION
  Report Type: 
  Country: None (occurrence: None)
  Receive Date: 20070627
  Receipt Date: 20070614
  Transmission Date: 20071010
  Serious: Yes (Life-Threatening, Hospitalization, Disabling, Other)
  Sender: FDA-Public Use
  Company Number: T07-USA-02615-01

PATIENT
  Age: 30 Year
  Sex: Female
  Weight: 71.5 kg

DRUGS (3)
  1. CERVIDIL [Suspect]
     Indication: LABOUR INDUCTION
     Dosage: 10 MG ONCE VG
     Route: 067
     Dates: start: 20061227, end: 20061227
  2. ZOLPIDEM TARTRATE [Concomitant]
  3. TYLENOL (CAPLET) [Concomitant]

REACTIONS (9)
  - CAESAREAN SECTION [None]
  - DRUG EXPOSURE DURING PREGNANCY [None]
  - HAEMATOCRIT DECREASED [None]
  - HAEMOGLOBIN DECREASED [None]
  - NO THERAPEUTIC RESPONSE [None]
  - PLACENTAL INFARCTION [None]
  - PRE-ECLAMPSIA [None]
  - SURGICAL FAILURE [None]
  - UTERINE ATONY [None]
